FAERS Safety Report 9728030 (Version 1)
Quarter: 2013Q4

REPORT INFORMATION
  Report Type: Report from Study
  Country: US (occurrence: US)
  Receive Date: 20131204
  Receipt Date: 20131204
  Transmission Date: 20140711
  Serious: No
  Sender: FDA-Public Use
  Company Number: US-009507513-1312USA001616

PATIENT
  Sex: 0

DRUGS (1)
  1. ETONOGESTREL IMPLANT- IMPLANON NEXT [Suspect]
     Dosage: STRENGTH: 68 MG
     Dates: start: 20131007

REACTIONS (1)
  - Injury associated with device [Unknown]
